FAERS Safety Report 6289041-X (Version None)
Quarter: 2009Q3

REPORT INFORMATION
  Report Type: 
  Country: None (occurrence: None)
  Receive Date: 20090727
  Receipt Date: 20090717
  Transmission Date: 20100115
  Serious: No
  Sender: FDA-Public Use
  Company Number: 2009S1012938

PATIENT
  Age: 38 Year
  Sex: Male

DRUGS (1)
  1. CLOZAPINE [Suspect]
     Dates: start: 20080901, end: 20090716

REACTIONS (3)
  - ANXIETY [None]
  - HALLUCINATION [None]
  - PSYCHIATRIC DECOMPENSATION [None]
